FAERS Safety Report 6056644-7 (Version None)
Quarter: 2009Q1

REPORT INFORMATION
  Report Type: 
  Country: None (occurrence: None)
  Receive Date: 20090129
  Receipt Date: 20090113
  Transmission Date: 20090719
  Serious: Yes (Hospitalization)
  Sender: FDA-Public Use
  Company Number: US-PFIZER INC-2009159614

PATIENT
  Age: 11 Year
  Sex: Male

DRUGS (7)
  1. SERTRALINE HCL [Suspect]
     Dosage: UNK
  2. FUROSEMIDE [Suspect]
     Dosage: UNK
  3. AMPHETAMINE SULFATE [Suspect]
     Dosage: 20 MG, 2X/DAY
  4. GUANFACINE [Suspect]
     Dosage: 1 MG, 3X/DAY
  5. ESKALITH [Suspect]
     Dosage: 450 MG, 2X/DAY
  6. TOPIRAMATE [Suspect]
     Dosage: 100 MG, 2X/DAY
  7. OLANZAPINE [Suspect]
     Dosage: 10 MG, 3X/DAY

REACTIONS (3)
  - ABNORMAL BEHAVIOUR [None]
  - GLOMERULONEPHRITIS MINIMAL LESION [None]
  - NEPHROTIC SYNDROME [None]
